FAERS Safety Report 12171504 (Version 1)
Quarter: 2016Q1

REPORT INFORMATION
  Report Type: Report from Study
  Country: US (occurrence: US)
  Receive Date: 20160311
  Receipt Date: 20160311
  Transmission Date: 20160526
  Serious: Yes (Other)
  Sender: FDA-Public Use
  Company Number: PHHO2016US003732

PATIENT
  Age: 56 Year
  Sex: Female

DRUGS (7)
  1. SOM230 [Suspect]
     Active Substance: PASIREOTIDE
     Indication: DUMPING SYNDROME
     Dosage: 10 MG, QMO (AT 13 WEEKS)
     Route: 030
  2. ZOLEDRONIC ACID [Concomitant]
     Active Substance: ZOLEDRONIC ACID
     Indication: PRODUCT USED FOR UNKNOWN INDICATION
     Dosage: UNK
     Route: 065
  3. SOM230 [Suspect]
     Active Substance: PASIREOTIDE
     Indication: DUMPING SYNDROME
     Dosage: 50 UG, TID
     Route: 058
     Dates: start: 201407
  4. OXYCODONE AND ACETAMINOPHEN [Concomitant]
     Active Substance: ACETAMINOPHEN\OXYCODONE HYDROCHLORIDE
     Indication: PRODUCT USED FOR UNKNOWN INDICATION
     Dosage: UNK
     Route: 065
  5. FERROUS SULFATE [Concomitant]
     Active Substance: FERROUS SULFATE\FERROUS SULFATE, DRIED
     Indication: PRODUCT USED FOR UNKNOWN INDICATION
     Dosage: UNK
     Route: 065
  6. SOM230 [Suspect]
     Active Substance: PASIREOTIDE
     Dosage: 100 UG, TID (AT NINE WEEKS)
     Route: 058
  7. AMITRIPTYLINE [Concomitant]
     Active Substance: AMITRIPTYLINE
     Indication: PRODUCT USED FOR UNKNOWN INDICATION
     Dosage: UNK
     Route: 065

REACTIONS (1)
  - Adrenal insufficiency [Recovered/Resolved]
